FAERS Safety Report 8262104-5 (Version None)
Quarter: 2012Q2

REPORT INFORMATION
  Report Type: 
  Country: None (occurrence: None)
  Receive Date: 20120405
  Receipt Date: 20120329
  Transmission Date: 20120825
  Serious: Yes (Hospitalization, Other)
  Sender: FDA-Public Use
  Company Number: PHHY2010DE41166

PATIENT
  Sex: Female
  Weight: 85 kg

DRUGS (19)
  1. DIOVAN [Suspect]
     Indication: HYPERTENSION
     Dosage: 160 MG, UNK
     Route: 048
     Dates: start: 20080416
  2. TORSEMIDE [Concomitant]
     Indication: HYPERTENSION
     Dosage: 20 MG/DAY, UNK
     Route: 048
     Dates: start: 20090914
  3. OMEPRAZOLE [Concomitant]
     Indication: ABDOMINAL DISCOMFORT
     Dosage: 20 MG/DAY, UNK
     Route: 048
     Dates: start: 20090914
  4. ACTRAPID [Concomitant]
     Indication: DIABETES MELLITUS
     Dosage: 56 IU PER DAY, UNK
     Route: 058
     Dates: start: 20080416, end: 20090914
  5. ACTRAPID [Concomitant]
     Dosage: 54 IU/DAY, UNK
     Route: 058
     Dates: start: 20090614
  6. ALPHA RECEPTOR BLOCKERS [Concomitant]
     Dosage: UNK UKN, UNK
     Dates: start: 20101213
  7. LERCANIDIPINE [Concomitant]
     Indication: HYPERTENSION
     Dosage: 10 MG/DAY, UNK
     Route: 048
     Dates: start: 20090914
  8. CLONIDINE [Concomitant]
     Dosage: 0.225 MG/DAY, UNK
     Route: 048
     Dates: start: 20090914
  9. MOLSIDOMIN [Concomitant]
     Indication: CORONARY ARTERY DISEASE
     Dosage: UNK UKN, UNK, 88 (UNKNOWN UNITS)
     Route: 048
     Dates: start: 20080416
  10. RASILEZ [Suspect]
     Indication: HYPERTENSION
     Dosage: 300 MG OER DAY, UNK
     Route: 048
     Dates: start: 20090102, end: 20090821
  11. LEVOTHYROXINE SODIUM [Concomitant]
     Indication: HYPOTHYROIDISM
     Dosage: 75 UG, UNK
     Route: 048
     Dates: start: 20080416
  12. CALCIUM CHANNEL BLOCKERS [Concomitant]
     Dosage: UNK UKN, UNK
  13. SPIRONOLACTONE [Concomitant]
     Indication: HYPERTENSION
     Dosage: 50 MG/DAY, UNK
     Route: 048
     Dates: start: 20090914
  14. ENALAPRIL [Concomitant]
     Indication: HYPERTENSION
     Dosage: UNK UKN, UNK, 20 (UNKNOWN UNITS)
     Route: 048
     Dates: start: 20080416
  15. CLONIDINE [Concomitant]
     Indication: HYPERTENSION
     Dosage: UNK UKN, UNK, 300 (UNKNOWN UNITS)
     Route: 048
     Dates: start: 20080416, end: 20090914
  16. METOPROLOL SUCCINATE [Concomitant]
     Indication: CORONARY ARTERY DISEASE
     Dosage: UNK UKN, UNK, 380 (UNKNOWN UNITS)
     Route: 048
     Dates: start: 20080416, end: 20090914
  17. FUROSEMIDE [Concomitant]
     Indication: CARDIAC FAILURE
     Dosage: UNK UKN, UNK, 40 (UNKNOWN UNITS)
     Route: 048
     Dates: start: 20080416, end: 20090914
  18. ASPIRIN [Concomitant]
     Indication: CORONARY ARTERY DISEASE
     Dosage: UNK UKN, UNK, 100 (UNKNOWN UNITS)
     Route: 048
     Dates: start: 20080416
  19. HMG COA REDUCTASE INHIBITORS (STATINS) [Concomitant]
     Dosage: UNK UKN, UNK

REACTIONS (15)
  - CONVULSION [None]
  - ENTEROCOLITIS HAEMORRHAGIC [None]
  - SYNCOPE [None]
  - MYOCARDIAL INFARCTION [None]
  - ACUTE CORONARY SYNDROME [None]
  - ANGINA UNSTABLE [None]
  - HYPERTENSIVE CRISIS [None]
  - ELECTROCARDIOGRAM QRS COMPLEX PROLONGED [None]
  - LEFT VENTRICULAR HYPERTROPHY [None]
  - INFECTION [None]
  - DYSPNOEA [None]
  - HYPERTENSION [None]
  - CARDIAC FAILURE [None]
  - BLOOD PRESSURE DIASTOLIC DECREASED [None]
  - BLOOD CREATININE INCREASED [None]
